FAERS Safety Report 11278467 (Version 2)
Quarter: 2015Q3

REPORT INFORMATION
  Report Type: Spontaneous
  Country: ES (occurrence: ES)
  Receive Date: 20150717
  Receipt Date: 20150910
  Transmission Date: 20151125
  Serious: Yes (Death, Life-Threatening, Hospitalization)
  Sender: FDA-Public Use
  Company Number: ES-009507513-1507ESP000980

PATIENT
  Age: 38 Year
  Sex: Female

DRUGS (8)
  1. TEMODAL [Suspect]
     Active Substance: TEMOZOLOMIDE
     Indication: GLIOBLASTOMA MULTIFORME
     Dosage: 160 MG, QD
     Route: 048
     Dates: start: 20120514, end: 20120605
  2. SULFAMETHOXAZOLE (+) TRIMETHOPRIM [Suspect]
     Active Substance: SULFAMETHOXAZOLE\TRIMETHOPRIM
     Dosage: UNK, ONCE
     Dates: start: 20120514, end: 20120605
  3. TEMODAL [Suspect]
     Active Substance: TEMOZOLOMIDE
     Dosage: 20 MG AND 40 MG, 30 MINUTES LATER
     Route: 048
  4. OMEPRAZOLE. [Concomitant]
     Active Substance: OMEPRAZOLE
     Indication: PROPHYLAXIS
     Dosage: 20 MG, Q24H
     Route: 048
     Dates: start: 20120420, end: 20120605
  5. CODEISAN [Concomitant]
     Dosage: 1 DF, Q8H
     Route: 048
     Dates: start: 20120420, end: 20120605
  6. SULFAMETHOXAZOLE (+) TRIMETHOPRIM [Suspect]
     Active Substance: SULFAMETHOXAZOLE\TRIMETHOPRIM
     Indication: INFECTION PROPHYLAXIS
     Dosage: QUARTER OF TABLE 160/180 MG
  7. DEXAMETHASONE. [Concomitant]
     Active Substance: DEXAMETHASONE
     Indication: GLIOBLASTOMA MULTIFORME
     Dosage: 4 MG, QD
     Route: 048
     Dates: start: 20120420, end: 20120605
  8. KEPPRA [Concomitant]
     Active Substance: LEVETIRACETAM
     Indication: CONVULSION PROPHYLAXIS
     Dosage: 500 MG, QD
     Route: 048
     Dates: start: 20120420, end: 20120605

REACTIONS (2)
  - Glioblastoma multiforme [Fatal]
  - Toxic epidermal necrolysis [Recovered/Resolved]

NARRATIVE: CASE EVENT DATE: 20120520
